FAERS Safety Report 16387314 (Version 1)
Quarter: 2019Q2

REPORT INFORMATION
  Report Type: Spontaneous
  Country: US (occurrence: US)
  Receive Date: 20190426
  Receipt Date: 20190426
  Transmission Date: 20190711
  Serious: No
  Sender: FDA-Public Use
  Company Number: None

PATIENT
  Age: 84 Year
  Sex: Female

DRUGS (1)
  1. LORBRENA [Suspect]
     Active Substance: LORLATINIB
     Route: 046
     Dates: start: 20190103

REACTIONS (4)
  - Fatigue [None]
  - Dyspnoea [None]
  - Cardiac disorder [None]
  - Therapy cessation [None]

NARRATIVE: CASE EVENT DATE: 20190426
